FAERS Safety Report 24765946 (Version 1)
Quarter: 2024Q4

REPORT INFORMATION
  Report Type: Spontaneous
  Country: CN (occurrence: CN)
  Receive Date: 20241223
  Receipt Date: 20241223
  Transmission Date: 20250115
  Serious: Yes (Other)
  Sender: BRACCO
  Company Number: CN-BRACCO-2024CN07940

PATIENT
  Age: 70 Year
  Sex: Female

DRUGS (1)
  1. IOPAMIDOL [Suspect]
     Active Substance: IOPAMIDOL
     Indication: Computerised tomogram head
     Dosage: 100 ML, SINGLE
     Route: 042
     Dates: start: 20241122, end: 20241122

REACTIONS (3)
  - Syncope [Unknown]
  - Unresponsive to stimuli [Unknown]
  - Erythema [Unknown]

NARRATIVE: CASE EVENT DATE: 20241122
